FAERS Safety Report 9753675 (Version 1)
Quarter: 2013Q4

REPORT INFORMATION
  Report Type: Spontaneous
  Country: US (occurrence: US)
  Receive Date: 20131213
  Receipt Date: 20131213
  Transmission Date: 20140711
  Serious: No
  Sender: FDA-Public Use
  Company Number: US-GILEAD-2009-0026049

PATIENT
  Age: 57 Year
  Sex: Female
  Weight: 117.93 kg

DRUGS (9)
  1. LETAIRIS [Suspect]
     Indication: PULMONARY ARTERIAL HYPERTENSION
     Route: 048
     Dates: start: 20091216
  2. PLAQUENIL [Concomitant]
  3. METFORMIN [Concomitant]
  4. ALBUTEROL [Concomitant]
  5. FLONASE [Concomitant]
  6. NEXIUM [Concomitant]
  7. SPIRONOLACTONE [Concomitant]
  8. LORCET PLUS [Concomitant]
  9. LEVOXYL [Concomitant]

REACTIONS (4)
  - Fatigue [Recovering/Resolving]
  - Unevaluable event [Recovering/Resolving]
  - Productive cough [Recovering/Resolving]
  - Nausea [Recovering/Resolving]
